FAERS Safety Report 7023303-3 (Version None)
Quarter: 2010Q3

REPORT INFORMATION
  Report Type: 
  Country: None (occurrence: None)
  Receive Date: 20100930
  Receipt Date: 20100923
  Transmission Date: 20110219
  Serious: Yes (Other)
  Sender: FDA-Public Use
  Company Number: US-PFIZER INC-2010111946

PATIENT
  Sex: Male
  Weight: 75 kg

DRUGS (9)
  1. CHANTIX [Suspect]
     Indication: SMOKING CESSATION THERAPY
     Dosage: UNK
     Route: 048
     Dates: start: 20100901, end: 20100901
  2. TRAZODONE [Concomitant]
     Dosage: UNK
  3. TOPAMAX [Concomitant]
     Dosage: UNK
  4. LAMOTRIGINE [Concomitant]
     Dosage: UNK
  5. SEROQUEL [Concomitant]
     Dosage: UNK
  6. ARICEPT [Concomitant]
     Dosage: UNK
  7. CITALOPRAM [Concomitant]
     Dosage: UNK
  8. WARFARIN [Concomitant]
     Indication: BLOOD VISCOSITY INCREASED
     Dosage: UNK
  9. SERTRALINE [Concomitant]
     Dosage: UNK

REACTIONS (3)
  - BLOOD VISCOSITY INCREASED [None]
  - MEMORY IMPAIRMENT [None]
  - WEIGHT INCREASED [None]
